FAERS Safety Report 6086576-X (Version None)
Quarter: 2009Q1

REPORT INFORMATION
  Report Type: 
  Country: None (occurrence: None)
  Receive Date: 20090223
  Receipt Date: 20090212
  Transmission Date: 20090719
  Serious: Yes (Hospitalization, Other)
  Sender: FDA-Public Use
  Company Number: US-AMGEN-QUU333650

PATIENT
  Sex: Female

DRUGS (1)
  1. ENBREL [Suspect]
     Indication: RHEUMATOID ARTHRITIS
     Dates: start: 20010601, end: 20080101

REACTIONS (4)
  - HIP FRACTURE [None]
  - LUNG DISORDER [None]
  - LUNG NEOPLASM [None]
  - WOUND INFECTION STAPHYLOCOCCAL [None]
